FAERS Safety Report 6919098-1 (Version None)
Quarter: 2010Q3

REPORT INFORMATION
  Report Type: 
  Country: None (occurrence: None)
  Receive Date: 20100811
  Receipt Date: 20100804
  Transmission Date: 20110219
  Serious: Yes (Hospitalization)
  Sender: FDA-Public Use
  Company Number: KR-SANOFI-AVENTIS-2010SA047100

PATIENT
  Age: 71 Year
  Sex: Male
  Weight: 62 kg

DRUGS (9)
  1. LASIX [Suspect]
     Route: 065
     Dates: start: 20060420
  2. ALL OTHER THERAPEUTIC PRODUCTS [Suspect]
     Route: 065
     Dates: start: 20081202, end: 20081228
  3. ALL OTHER THERAPEUTIC PRODUCTS [Suspect]
     Route: 065
     Dates: start: 20081229
  4. WARFARIN [Concomitant]
     Dates: start: 20061209
  5. CARVEDILOL [Concomitant]
     Dates: start: 20060703
  6. DIGOXIN [Concomitant]
     Dates: start: 20060419
  7. ATACAND [Concomitant]
     Dates: start: 20060419
  8. AMARYL [Concomitant]
     Dates: start: 20060419
  9. BASEN [Concomitant]
     Dates: start: 20060419

REACTIONS (1)
  - GOUTY ARTHRITIS [None]
